FAERS Safety Report 6741810-5 (Version None)
Quarter: 2010Q2

REPORT INFORMATION
  Report Type: 
  Country: None (occurrence: None)
  Receive Date: 20100526
  Receipt Date: 20100517
  Transmission Date: 20101027
  Serious: Yes (Hospitalization)
  Sender: FDA-Public Use
  Company Number: US-ROCHE-703888

PATIENT
  Age: 71 Year
  Sex: Female

DRUGS (6)
  1. BEVACIZUMAB [Suspect]
     Indication: NON-SMALL CELL LUNG CANCER
     Route: 065
     Dates: start: 20100420, end: 20100420
  2. PACLITAXEL [Suspect]
     Indication: NON-SMALL CELL LUNG CANCER
     Route: 050
     Dates: start: 20100420, end: 20100420
  3. CARBOPLATIN [Suspect]
     Indication: NON-SMALL CELL LUNG CANCER
     Route: 042
     Dates: start: 20100420, end: 20100420
  4. TEMAZEPAM [Concomitant]
  5. NEUPOGEN [Concomitant]
  6. AREDIA [Concomitant]
     Dates: start: 20100427

REACTIONS (1)
  - HOSPITALISATION [None]
